FAERS Safety Report 12967802 (Version 1)
Quarter: 2016Q4

REPORT INFORMATION
  Report Type: Spontaneous
  Country: US (occurrence: US)
  Receive Date: 20161122
  Receipt Date: 20161122
  Transmission Date: 20170207
  Serious: Yes (Other)
  Sender: FDA-Public Use
  Company Number: None

PATIENT
  Age: 70 Year
  Sex: Female
  Weight: 85.5 kg

DRUGS (2)
  1. AMLODIPINE [Suspect]
     Active Substance: AMLODIPINE BESYLATE
     Indication: CARDIAC FAILURE
     Dates: start: 20160810
  2. ONCE A DAY MULTI VITAMIN [Concomitant]

REACTIONS (9)
  - Angina pectoris [None]
  - Headache [None]
  - Ocular discomfort [None]
  - Joint swelling [None]
  - Gingival swelling [None]
  - Haemorrhage [None]
  - Gingival bleeding [None]
  - Paraesthesia [None]
  - Hypoaesthesia [None]

NARRATIVE: CASE EVENT DATE: 20160811
